FAERS Safety Report 4745259-6 (Version None)
Quarter: 2005Q3

REPORT INFORMATION
  Report Type: 
  Country: None (occurrence: None)
  Receive Date: 20050812
  Receipt Date: 20050803
  Transmission Date: 20060218
  Serious: Yes (Hospitalization)
  Sender: FDA-Public Use
  Company Number: 2005110910

PATIENT
  Age: 82 Year
  Sex: Female

DRUGS (11)
  1. NORVASC [Suspect]
     Indication: HYPERTENSION
     Dosage: 5 MG (5 MG, 1 IN 1 D), ORAL
     Route: 048
     Dates: start: 20050522, end: 20050601
  2. METOPROLOL NM (METOPROLOL) [Suspect]
     Indication: HYPERTENSION
     Dosage: 25 MG (25 MG, 1 IN 1 D), ORAL
     Route: 048
     Dates: start: 20050522, end: 20050601
  3. CALCIGRAN FORTE (CALCIUM CARBONATE, COLECALCIFEROL) [Concomitant]
  4. NEXIUM [Concomitant]
  5. LEVAXIN (LEVOTHYROXINE SODIUM) [Concomitant]
  6. PAROXETINE HCL [Concomitant]
  7. FOSAMAX [Concomitant]
  8. PRAVACHOL [Concomitant]
  9. PREDNISOLONE [Concomitant]
  10. MAREVAN (WARFARIN) [Concomitant]
  11. COZAAR COMP (HYDROCHLOROTHIAZIDE, LOSARTAN POTASSIUM) [Concomitant]

REACTIONS (9)
  - DEATH OF RELATIVE [None]
  - DIARRHOEA [None]
  - DIZZINESS [None]
  - DRUG INTERACTION [None]
  - EMOTIONAL DISTRESS [None]
  - FEELING HOT [None]
  - LISTLESS [None]
  - NAUSEA [None]
  - PAIN [None]
